FAERS Safety Report 4501174-4 (Version None)
Quarter: 2004Q4

REPORT INFORMATION
  Report Type: 
  Country: None (occurrence: None)
  Receive Date: 20041115
  Receipt Date: 20040315
  Transmission Date: 20050328
  Serious: Yes (Hospitalization)
  Sender: FDA-Public Use
  Company Number: PHHO2004IT03801

PATIENT
  Age: 76 Year
  Sex: Female
  Weight: 64 kg

DRUGS (4)
  1. TAMOXIFEN CITRATE [Suspect]
     Indication: BREAST CANCER
     Route: 048
     Dates: start: 20020906
  2. TENSOGARD [Concomitant]
     Indication: HYPERTENSION
  3. REMERON [Concomitant]
     Indication: DEPRESSION
  4. XANAX [Concomitant]
     Indication: ANXIETY

REACTIONS (6)
  - AMNESIA [None]
  - CONCOMITANT DISEASE PROGRESSION [None]
  - CONFUSIONAL STATE [None]
  - DEPRESSION [None]
  - DISTURBANCE IN ATTENTION [None]
  - TREMOR [None]
